FAERS Safety Report 10185846 (Version 2)
Quarter: 2014Q2

REPORT INFORMATION
  Report Type: Spontaneous
  Country: ES (occurrence: ES)
  Receive Date: 20140521
  Receipt Date: 20140611
  Transmission Date: 20141212
  Serious: Yes (Other)
  Sender: FDA-Public Use
  Company Number: ES-AMGEN INC.-ESPSP2014037097

PATIENT
  Age: 82 Year
  Sex: Male

DRUGS (5)
  1. ENBREL [Suspect]
     Indication: RHEUMATOID ARTHRITIS
     Dosage: UNK
     Route: 065
     Dates: start: 2007
  2. ENBREL [Suspect]
     Dosage: UNK
     Route: 065
  3. PREDNISONE [Concomitant]
     Dosage: 5 MG, DAILY
     Dates: start: 2006
  4. METHOTREXATE [Concomitant]
     Dosage: 5 MG, WEEKLY
     Dates: start: 2006
  5. FOLIC ACID [Concomitant]
     Dosage: 5 MG, WEEKLY

REACTIONS (1)
  - Non-small cell lung cancer [Not Recovered/Not Resolved]
